FAERS Safety Report 9837950 (Version 5)
Quarter: 2014Q4

REPORT INFORMATION
  Report Type: Spontaneous
  Country: US (occurrence: US)
  Receive Date: 20140123
  Receipt Date: 20141217
  Transmission Date: 20150529
  Serious: Yes (Other)
  Sender: FDA-Public Use
  Company Number: US-BAYER-2014-010287

PATIENT
  Age: 28 Year
  Sex: Female
  Weight: 50 kg

DRUGS (2)
  1. MIRENA [Suspect]
     Active Substance: LEVONORGESTREL
     Indication: CONTRACEPTION
     Dosage: 20 MCG/24HR, CONT
     Route: 015
     Dates: start: 20090630, end: 20111121
  2. KEFLEX [Concomitant]
     Active Substance: CEPHALEXIN

REACTIONS (7)
  - Uterine perforation [None]
  - Abdominal pain lower [None]
  - Emotional distress [None]
  - Vaginal haemorrhage [None]
  - Device dislocation [None]
  - Injury [None]
  - Pain [None]

NARRATIVE: CASE EVENT DATE: 201109
